FAERS Safety Report 21707552 (Version 1)
Quarter: 2022Q4

REPORT INFORMATION
  Report Type: Spontaneous
  Country: GB (occurrence: GB)
  Receive Date: 20221209
  Receipt Date: 20221209
  Transmission Date: 20230112
  Serious: Yes (Other)
  Sender: FDA-Public Use
  Company Number: GB-PFIZER INC-PV202200118730

PATIENT
  Age: 50 Year
  Sex: Female

DRUGS (5)
  1. AROMASIN [Suspect]
     Active Substance: EXEMESTANE
     Dosage: 25 MG, DAILY
     Dates: start: 202201
  2. METFORMIN [Concomitant]
     Active Substance: METFORMIN HYDROCHLORIDE
     Dosage: 2*100MG/DAY
  3. NAPROXEN [Concomitant]
     Active Substance: NAPROXEN
     Dosage: 500 MG, 2X/DAY
  4. OMEPRAZOLE [Concomitant]
     Active Substance: OMEPRAZOLE
     Dosage: 20 MG, DAILY
  5. ATORVASTATIN [Concomitant]
     Active Substance: ATORVASTATIN
     Dosage: 10 MG, DAILY

REACTIONS (7)
  - Type 2 diabetes mellitus [Not Recovered/Not Resolved]
  - Synovitis [Not Recovered/Not Resolved]
  - Carpal tunnel syndrome [Not Recovered/Not Resolved]
  - Arthritis [Not Recovered/Not Resolved]
  - Meniscus injury [Not Recovered/Not Resolved]
  - Blood cholesterol increased [Not Recovered/Not Resolved]
  - Cholelithiasis [Not Recovered/Not Resolved]
